FAERS Safety Report 24700543 (Version 1)
Quarter: 2024Q4

REPORT INFORMATION
  Report Type: Spontaneous
  Country: DE (occurrence: DE)
  Receive Date: 20241205
  Receipt Date: 20241205
  Transmission Date: 20250114
  Serious: Yes (Life-Threatening, Hospitalization, Other)
  Sender: MERCK
  Company Number: DE-009507513-2411DEU010884

PATIENT
  Age: 39 Year
  Sex: Male

DRUGS (4)
  1. ERTUGLIFLOZIN [Suspect]
     Active Substance: ERTUGLIFLOZIN
     Indication: Pancreatogenous diabetes
     Dosage: 15 MILLIGRAM, QD
     Route: 048
  2. DAPAGLIFLOZIN [Suspect]
     Active Substance: DAPAGLIFLOZIN
     Dosage: 10 MILLIGRAM, QD
  3. INSULINUM [Concomitant]
  4. METFORMIN [Concomitant]
     Active Substance: METFORMIN HYDROCHLORIDE
     Dosage: 1000 MILLIGRAM, BID

REACTIONS (2)
  - Euglycaemic diabetic ketoacidosis [Unknown]
  - Product use in unapproved indication [Unknown]
